FAERS Safety Report 5170494-5 (Version None)
Quarter: 2006Q4

REPORT INFORMATION
  Report Type: 
  Country: None (occurrence: None)
  Receive Date: 20061204
  Receipt Date: 20061122
  Transmission Date: 20070319
  Serious: Yes (Other)
  Sender: FDA-Public Use
  Company Number: 2006142911

PATIENT
  Age: 58 Year
  Sex: Female

DRUGS (2)
  1. XALATAN [Suspect]
     Indication: GLAUCOMA
     Dosage: 2 DROP (1 DROP,2 IN 1 D)
  2. BETOPTIC [Suspect]
     Indication: GLAUCOMA
     Dosage: 2 DROP (1 DROP,2 IN 1 D), INTRAOCULAR
     Route: 031

REACTIONS (5)
  - BLOOD CHOLESTEROL INCREASED [None]
  - DRUG INEFFECTIVE [None]
  - INTRAOCULAR PRESSURE INCREASED [None]
  - MYOPIA [None]
  - VISUAL FIELD DEFECT [None]
